FAERS Safety Report 8769208 (Version 2)
Quarter: 2012Q4

REPORT INFORMATION
  Report Type: 
  Country: US (occurrence: US)
  Receive Date: 20120905
  Receipt Date: 20120921
  Transmission Date: 20130627
  Serious: No
  Sender: FDA-Public Use
  Company Number: US-PFIZER INC-2012215246

PATIENT
  Age: 44 Year
  Sex: Female
  Weight: 111 kg

DRUGS (6)
  1. PRONUTRIENTS OMEGA 3 [Suspect]
     Indication: MEDICAL DIET
     Dosage: 400/200/65mg, two mini gels a day
     Route: 048
     Dates: start: 20120825
  2. IBUPROFEN [Suspect]
     Indication: PAIN
     Dosage: UNK
  3. IBUPROFEN [Suspect]
     Indication: INFLAMMATION
  4. MOTRIN [Suspect]
     Indication: PAIN
     Dosage: UNK
  5. MOTRIN [Suspect]
     Indication: INFLAMMATION
  6. LISINOPRIL [Concomitant]
     Indication: HYPERTENSION
     Dosage: UNK

REACTIONS (3)
  - Drug ineffective [Unknown]
  - Pre-existing condition improved [Unknown]
  - Therapeutic response unexpected [Unknown]
